FAERS Safety Report 16787570 (Version 4)
Quarter: 2019Q4

REPORT INFORMATION
  Report Type: Spontaneous
  Country: RU (occurrence: RU)
  Receive Date: 20190909
  Receipt Date: 20191007
  Transmission Date: 20200122
  Serious: Yes (Other)
  Sender: FDA-Public Use
  Company Number: RU-ALEXION PHARMACEUTICALS INC.-A201912566

PATIENT
  Age: 55 Year
  Sex: Female

DRUGS (2)
  1. SOLIRIS [Suspect]
     Active Substance: ECULIZUMAB
     Dosage: 900 MG, Q2W
     Route: 042
  2. SOLIRIS [Suspect]
     Active Substance: ECULIZUMAB
     Indication: PAROXYSMAL NOCTURNAL HAEMOGLOBINURIA
     Dosage: 600 MG, QW
     Route: 042
     Dates: start: 20121113

REACTIONS (11)
  - Extravascular haemolysis [Unknown]
  - Complement factor C3 increased [Unknown]
  - Drug ineffective [Unknown]
  - Headache [Recovered/Resolved]
  - Haemolysis [Recovered/Resolved]
  - Hyperaemia [Recovered/Resolved]
  - Chromaturia [Recovered/Resolved]
  - Anaemia [Unknown]
  - Macrocytosis [Unknown]
  - Large intestine polyp [Unknown]
  - Blood lactate dehydrogenase increased [Unknown]

NARRATIVE: CASE EVENT DATE: 20121113
